FAERS Safety Report 6356774-6 (Version None)
Quarter: 2009Q3

REPORT INFORMATION
  Report Type: 
  Country: None (occurrence: None)
  Receive Date: 20090911
  Receipt Date: 20090911
  Transmission Date: 20100115
  Serious: Yes (Other)
  Sender: FDA-Public Use
  Company Number: None

PATIENT
  Sex: Female
  Weight: 75 kg

DRUGS (2)
  1. ETHAMBUTOL HYDROCHLORIDE [Suspect]
     Indication: ATYPICAL MYCOBACTERIAL INFECTION
     Dosage: 1200 MG QD PO
     Route: 048
     Dates: start: 20090101, end: 20090818
  2. ETHAMBUTOL HYDROCHLORIDE [Suspect]

REACTIONS (4)
  - COLOUR BLINDNESS [None]
  - OPTIC NEURITIS [None]
  - VISUAL ACUITY REDUCED [None]
  - VISUAL FIELD DEFECT [None]
